FAERS Safety Report 11805223 (Version 1)
Quarter: 2015Q4

REPORT INFORMATION
  Report Type: Other
  Country: GB (occurrence: GB)
  Receive Date: 20151206
  Receipt Date: 20151206
  Transmission Date: 20160305
  Serious: Yes (Other)
  Sender: FDA-Public Use
  Company Number: GB-MYLANLABS-2015M1041974

PATIENT

DRUGS (16)
  1. FLECAINIDE ACETATE. [Concomitant]
     Active Substance: FLECAINIDE ACETATE
     Dosage: 1 DF, BID
     Dates: start: 20150407
  2. LAMOTRIGINE. [Concomitant]
     Active Substance: LAMOTRIGINE
     Dosage: 1 DF, BID
     Dates: start: 20141020
  3. FUROSEMIDE. [Concomitant]
     Active Substance: FUROSEMIDE
     Dosage: 2 DF, QD (EACH MORNING)
     Dates: start: 20141020
  4. GABAPENTIN. [Suspect]
     Active Substance: GABAPENTIN
     Dosage: 300 MG, BID (TAKING FOR MONTHS)
     Dates: start: 20150603
  5. LAXIDO [Concomitant]
     Active Substance: POLYETHYLENE GLYCOL 3350\POTASSIUM CHLORIDE\SODIUM BICARBONATE\SODIUM CHLORIDE
     Dosage: USE AS DIRECTED TWICE DAILY
     Dates: start: 20150313
  6. SIMVASTATIN. [Concomitant]
     Active Substance: SIMVASTATIN
     Dosage: 1 DF, QD
     Dates: start: 20150407
  7. BACLOFEN. [Concomitant]
     Active Substance: BACLOFEN
     Dosage: 2 DF, TID
     Dates: start: 20141020
  8. DOUBLEBASE [Concomitant]
     Active Substance: ISOPROPYL MYRISTATE\PARAFFIN
     Dosage: UNK
     Dates: start: 20141020
  9. CIPROFLOXACIN. [Concomitant]
     Active Substance: CIPROFLOXACIN
     Dosage: 1 DF, BID
     Dates: start: 20150928, end: 20150929
  10. LACTULOSE. [Concomitant]
     Active Substance: LACTULOSE
     Dosage: 15 ML, BID
     Dates: start: 20141020
  11. LEVETIRACETAM. [Concomitant]
     Active Substance: LEVETIRACETAM
     Dosage: 1 DF, BID
     Dates: start: 20150609
  12. ASPIRIN                            /00002701/ [Concomitant]
     Active Substance: ASPIRIN
     Dosage: 1 DF, QD (WITH FOOD)
     Dates: start: 20150407
  13. SALIVA [Concomitant]
     Dates: start: 20141020
  14. BISACODYL. [Concomitant]
     Active Substance: BISACODYL
     Indication: CONSTIPATION
     Dosage: 1 DF, UNK
     Dates: start: 20141020
  15. BISOPROLOL [Concomitant]
     Active Substance: BISOPROLOL
     Dosage: 1 DF, QD
     Dates: start: 20150407
  16. CLONAZEPAM. [Concomitant]
     Active Substance: CLONAZEPAM
     Dosage: HALF TO ONE TABLET WHEN REQUIRED UP TO TWICE A DAY
     Dates: start: 20141020

REACTIONS (2)
  - Nitrite urine present [Recovered/Resolved]
  - Abdominal symptom [Unknown]

NARRATIVE: CASE EVENT DATE: 20150801
